FAERS Safety Report 18104162 (Version 1)
Quarter: 2020Q3

REPORT INFORMATION
  Report Type: Spontaneous
  Country: US (occurrence: US)
  Receive Date: 20200803
  Receipt Date: 20200803
  Transmission Date: 20201103
  Serious: Yes (Hospitalization)
  Sender: FDA-Public Use
  Company Number: None

PATIENT
  Age: 75 Year
  Sex: Male
  Weight: 74 kg

DRUGS (2)
  1. REMDESIVIR. [Suspect]
     Active Substance: REMDESIVIR
  2. REMDESIVIR. [Concomitant]
     Active Substance: REMDESIVIR
     Dates: start: 20200729

REACTIONS (5)
  - Blood urea abnormal [None]
  - Alanine aminotransferase increased [None]
  - Aspartate aminotransferase increased [None]
  - Glomerular filtration rate abnormal [None]
  - Acute kidney injury [None]

NARRATIVE: CASE EVENT DATE: 20200802
